FAERS Safety Report 7854188-0 (Version None)
Quarter: 2011Q4

REPORT INFORMATION
  Report Type: 
  Country: None (occurrence: None)
  Receive Date: 20111026
  Receipt Date: 20111013
  Transmission Date: 20120403
  Serious: Yes (Hospitalization)
  Sender: FDA-Public Use
  Company Number: GB-MYLANLABS-2011S1021451

PATIENT
  Age: 76 Year
  Sex: Male
  Weight: 76.2 kg

DRUGS (2)
  1. TAMSULOSIN HCL [Suspect]
     Indication: PROSTATITIS
     Route: 048
     Dates: start: 20110711, end: 20110914
  2. DOXYCYCLINE [Concomitant]
     Indication: PROSTATITIS
     Route: 048
     Dates: start: 20110711, end: 20110807

REACTIONS (2)
  - DEPRESSION [None]
  - ANXIETY [None]
